FAERS Safety Report 4896660-1 (Version None)
Quarter: 2005Q4

REPORT INFORMATION
  Report Type: 
  Country: None (occurrence: None)
  Receive Date: 20051223
  Receipt Date: 20051121
  Transmission Date: 20060501
  Serious: No
  Sender: FDA-Public Use
  Company Number: 05P-163-0317690-00

PATIENT
  Age: 79 Year
  Sex: Female
  Weight: 60.782 kg

DRUGS (11)
  1. HUMIRA [Suspect]
     Indication: RHEUMATOID ARTHRITIS
     Dosage: 40 MG, 1 IN 2 WK, SUBCUTANEOUS
     Route: 058
     Dates: start: 20030101
  2. RYTHMOL [Concomitant]
  3. FOLIC ACID [Concomitant]
  4. METHOTREXATE [Concomitant]
  5. ESTROGENS CONJUGATED [Concomitant]
  6. RISEDRONATE SODIUM [Concomitant]
  7. PREDNISONE [Concomitant]
  8. CELECOXIB [Concomitant]
  9. LABETALOL HCL [Concomitant]
  10. AMLODIPINE BESYLATE [Concomitant]
  11. HYZAAR [Concomitant]

REACTIONS (1)
  - FUNGAL INFECTION [None]
